FAERS Safety Report 9492618 (Version 1)
Quarter: 2013Q3

REPORT INFORMATION
  Report Type: Spontaneous
  Country: CN (occurrence: CN)
  Receive Date: 20130830
  Receipt Date: 20130830
  Transmission Date: 20140515
  Serious: Yes (Other)
  Sender: FDA-Public Use
  Company Number: CN-PFIZER INC-2013248787

PATIENT
  Age: 54 Year
  Sex: Female
  Weight: 75 kg

DRUGS (4)
  1. SOLU-MEDROL [Suspect]
     Indication: SCLERITIS
     Dosage: 500 MG, 1X/DAY
     Route: 041
     Dates: start: 20120618, end: 20120621
  2. MEDROL [Suspect]
     Indication: SCLERITIS
     Dosage: 60 MG, 1X/DAY
     Route: 048
  3. MEDROL [Suspect]
     Dosage: 50 MG, 1X/DAY
     Route: 048
  4. RANITIDINE [Concomitant]
     Indication: PROPHYLAXIS AGAINST GASTROINTESTINAL ULCER
     Dosage: UNK

REACTIONS (1)
  - White blood cell count increased [Unknown]
